FAERS Safety Report 9410493 (Version 1)
Quarter: 2013Q3

REPORT INFORMATION
  Report Type: Report from Study
  Country: ES (occurrence: ES)
  Receive Date: 20130719
  Receipt Date: 20130719
  Transmission Date: 20140515
  Serious: Yes (Hospitalization)
  Sender: FDA-Public Use
  Company Number: ES-GLAXOSMITHKLINE-B0908802A

PATIENT
  Age: 51 Year
  Sex: Female

DRUGS (5)
  1. BENLYSTA [Suspect]
     Indication: SYSTEMIC LUPUS ERYTHEMATOSUS
     Route: 065
  2. METHOTREXATE [Concomitant]
     Dosage: 17.5MG WEEKLY
  3. PREDNISOLONE [Concomitant]
  4. HYDROXYCHLOROQUINE [Concomitant]
     Dosage: 400MG PER DAY
  5. AZATHIOPRINE [Concomitant]
     Dosage: 150MG PER DAY

REACTIONS (6)
  - Shrinking lung syndrome [Unknown]
  - Hypoxia [Recovering/Resolving]
  - Atelectasis [Unknown]
  - Pulmonary function test abnormal [Recovering/Resolving]
  - Chest pain [Unknown]
  - Analgesic therapy [Unknown]
